FAERS Safety Report 12221461 (Version 2)
Quarter: 2016Q1

REPORT INFORMATION
  Report Type: Spontaneous
  Country: JP (occurrence: JP)
  Receive Date: 20160330
  Receipt Date: 20160331
  Transmission Date: 20160526
  Serious: Yes (Death, Hospitalization, Other)
  Sender: FDA-Public Use
  Company Number: PHHY2016JP040029

PATIENT
  Age: 25 Year
  Sex: Male

DRUGS (11)
  1. DAUNORUBICIN HYDROCHLORIDE. [Suspect]
     Active Substance: DAUNORUBICIN HYDROCHLORIDE
     Indication: ACUTE MYELOID LEUKAEMIA
     Route: 065
  2. ARABINOSYLCYTOSINE [Suspect]
     Active Substance: CYTARABINE
     Indication: ACUTE MYELOID LEUKAEMIA
     Dosage: 4.6 G, UNK
     Route: 065
  3. CICLOSPORIN [Suspect]
     Active Substance: CYCLOSPORINE
     Indication: EPSTEIN-BARR VIRUS ASSOCIATED LYMPHOPROLIFERATIVE DISORDER
     Dosage: 150 MG, QD
     Route: 065
  4. CICLOSPORIN [Suspect]
     Active Substance: CYCLOSPORINE
     Indication: ACUTE GRAFT VERSUS HOST DISEASE IN SKIN
     Dosage: 3 MG/KG, UNK
     Route: 065
  5. ETOPOSIDE. [Suspect]
     Active Substance: ETOPOSIDE
     Indication: BONE MARROW CONDITIONING REGIMEN
     Route: 065
  6. METHOTREXATE [Suspect]
     Active Substance: METHOTREXATE
     Indication: PROPHYLAXIS AGAINST GRAFT VERSUS HOST DISEASE
     Route: 065
  7. CICLOSPORIN [Suspect]
     Active Substance: CYCLOSPORINE
     Indication: CORD BLOOD TRANSPLANT THERAPY
     Dosage: 50 MG, QD
     Route: 048
  8. CICLOSPORIN [Suspect]
     Active Substance: CYCLOSPORINE
     Indication: PROPHYLAXIS AGAINST GRAFT VERSUS HOST DISEASE
     Dosage: UNK, ON DAY 14 HOSPITALIZATION
     Route: 042
  9. CICLOSPORIN [Suspect]
     Active Substance: CYCLOSPORINE
     Indication: CHRONIC GRAFT VERSUS HOST DISEASE IN SKIN
  10. ARABINOSYLCYTOSINE [Suspect]
     Active Substance: CYTARABINE
     Dosage: 20 MG/M2, QD
     Route: 065
  11. IFOSFAMIDE. [Suspect]
     Active Substance: IFOSFAMIDE
     Indication: ACUTE MYELOID LEUKAEMIA
     Route: 065

REACTIONS (18)
  - Acute graft versus host disease in skin [Unknown]
  - Epstein-Barr virus associated lymphoproliferative disorder [Fatal]
  - Thrombotic microangiopathy [Unknown]
  - Drug ineffective [Unknown]
  - Multiple organ dysfunction syndrome [Fatal]
  - Circulatory collapse [Fatal]
  - Chronic graft versus host disease in skin [Unknown]
  - Respiratory failure [Unknown]
  - Hepatic function abnormal [Unknown]
  - Cardiac failure [Fatal]
  - Face oedema [Unknown]
  - Tenderness [Unknown]
  - Seizure [Unknown]
  - Pyrexia [Unknown]
  - Interstitial lung disease [Fatal]
  - Pulmonary haemorrhage [Fatal]
  - Hepatosplenomegaly [Unknown]
  - Erythema [Unknown]
